FAERS Safety Report 13400493 (Version 1)
Quarter: 2017Q2

REPORT INFORMATION
  Report Type: Other
  Country: CA (occurrence: CA)
  Receive Date: 20170404
  Receipt Date: 20170404
  Transmission Date: 20170830
  Serious: Yes (Disabling)
  Sender: FDA-Public Use
  Company Number: CA-APOTEX-2017AP009145

PATIENT
  Age: 44 Year
  Sex: Female
  Weight: 63 kg

DRUGS (1)
  1. APO-DULOXETINE [Suspect]
     Active Substance: DULOXETINE
     Indication: FIBROMYALGIA
     Dosage: 60 MG, QD
     Route: 065

REACTIONS (8)
  - Headache [Unknown]
  - Insomnia [Unknown]
  - Irritability [Unknown]
  - Fatigue [Unknown]
  - Depression [Unknown]
  - Pain [Unknown]
  - Dehydration [Unknown]
  - Abdominal discomfort [Unknown]
